FAERS Safety Report 20482609 (Version 1)
Quarter: 2022Q1

REPORT INFORMATION
  Report Type: Spontaneous
  Country: TN (occurrence: TN)
  Receive Date: 20220217
  Receipt Date: 20220217
  Transmission Date: 20220424
  Serious: No
  Sender: FDA-Public Use
  Company Number: TN-LUPIN PHARMACEUTICALS INC.-2022-02065

PATIENT
  Age: 49 Year
  Sex: Female

DRUGS (3)
  1. DOXYCYCLINE [Suspect]
     Active Substance: DOXYCYCLINE
     Indication: Erythematotelangiectatic rosacea
     Dosage: UNK
     Route: 048
  2. TRANEXAMIC ACID [Concomitant]
     Active Substance: TRANEXAMIC ACID
     Indication: Erythematotelangiectatic rosacea
     Dosage: UNK (INTRADERMAL TRANEXAMIC ACID 5 MG/ML MICROINJECTIONS. 5% TRANEXAMIC ACID WAS MADE FROM TRANEXAMI
     Route: 023
  3. SALINE [Concomitant]
     Active Substance: SODIUM CHLORIDE
     Indication: Medication dilution
     Dosage: UNK
     Route: 023

REACTIONS (2)
  - Drug ineffective for unapproved indication [Unknown]
  - Off label use [Unknown]
